FAERS Safety Report 8037559-1 (Version None)
Quarter: 2011Q4

REPORT INFORMATION
  Report Type: 
  Country: None (occurrence: None)
  Receive Date: 20111202
  Receipt Date: 20110318
  Transmission Date: 20120403
  Serious: Yes (Hospitalization)
  Sender: FDA-Public Use
  Company Number: WAES 1103USA02681

PATIENT
  Age: 52 Year
  Sex: Female
  Weight: 58.0604 kg

DRUGS (3)
  1. BONIVA [Suspect]
     Indication: OSTEOPENIA
     Dosage: 150 MG/MTH/PO
     Route: 048
     Dates: start: 20060201, end: 20100401
  2. FOSAMAX [Suspect]
     Indication: OSTEOPENIA
     Dosage: 70 MG/WKY/PO
     Route: 048
     Dates: start: 20020101, end: 20060201
  3. YASMIN [Concomitant]

REACTIONS (16)
  - LOW TURNOVER OSTEOPATHY [None]
  - OSTEOPOROSIS [None]
  - RHINITIS ALLERGIC [None]
  - FEMUR FRACTURE [None]
  - ORAL HERPES [None]
  - FOOT FRACTURE [None]
  - TYPE V HYPERLIPIDAEMIA [None]
  - PERIARTHRITIS [None]
  - HOT FLUSH [None]
  - VITAMIN D DEFICIENCY [None]
  - FUNGAL INFECTION [None]
  - TOOTH ABSCESS [None]
  - TENDONITIS [None]
  - IMPAIRED HEALING [None]
  - HYPERTENSION [None]
  - DENTAL CARIES [None]
